FAERS Safety Report 5918157-X (Version None)
Quarter: 2008Q4

REPORT INFORMATION
  Report Type: 
  Country: None (occurrence: None)
  Receive Date: 20081014
  Receipt Date: 20081007
  Transmission Date: 20090506
  Serious: No
  Sender: FDA-Public Use
  Company Number: US-B.I. PHARMACEUTICALS,INC./RIDGEFIELD-2008-BP-15447BP

PATIENT
  Age: 62 Year
  Sex: Female

DRUGS (1)
  1. ATROVENT HFA [Suspect]
     Route: 055

REACTIONS (3)
  - DRUG DISPENSING ERROR [None]
  - DYSPNOEA [None]
  - NASAL DISCOMFORT [None]
